FAERS Safety Report 6630587-X (Version None)
Quarter: 2010Q1

REPORT INFORMATION
  Report Type: 
  Country: None (occurrence: None)
  Receive Date: 20100311
  Receipt Date: 20090520
  Transmission Date: 20100710
  Serious: No
  Sender: FDA-Public Use
  Company Number: US-BIOGENIDEC-2009BI015559

PATIENT
  Sex: Female

DRUGS (1)
  1. AVONEX [Suspect]
     Indication: MULTIPLE SCLEROSIS
     Route: 030
     Dates: start: 19980301

REACTIONS (6)
  - BURNING SENSATION [None]
  - CRYING [None]
  - INFLUENZA LIKE ILLNESS [None]
  - INSOMNIA [None]
  - MASS [None]
  - PAIN IN EXTREMITY [None]
